FAERS Safety Report 22708427 (Version 3)
Quarter: 2024Q2

REPORT INFORMATION
  Report Type: Report from Study
  Country: US (occurrence: US)
  Receive Date: 20230715
  Receipt Date: 20240619
  Transmission Date: 20240716
  Serious: No
  Sender: FDA-Public Use
  Company Number: US-002147023-NVSC2023US157176

PATIENT
  Sex: Male

DRUGS (1)
  1. GLEEVEC [Suspect]
     Active Substance: IMATINIB MESYLATE
     Indication: Product used for unknown indication
     Route: 048

REACTIONS (8)
  - Wheezing [Unknown]
  - Dyspnoea [Unknown]
  - Cytogenetic analysis abnormal [Unknown]
  - Oedema [Unknown]
  - Diarrhoea [Unknown]
  - Cardiac disorder [Unknown]
  - Respiration abnormal [Unknown]
  - Atrioventricular block [Unknown]
